FAERS Safety Report 6296320-9 (Version None)
Quarter: 2009Q3

REPORT INFORMATION
  Report Type: 
  Country: None (occurrence: None)
  Receive Date: 20090803
  Receipt Date: 20090803
  Transmission Date: 20100115
  Serious: Yes (Hospitalization, Disabling)
  Sender: FDA-Public Use
  Company Number: None

PATIENT
  Age: 28 Year
  Sex: Female
  Weight: 59.8748 kg

DRUGS (3)
  1. PREDNISONE [Suspect]
     Indication: MIXED CONNECTIVE TISSUE DISEASE
     Dosage: 20 MGS. 4X/DAY PO
     Route: 048
  2. PREDNISONE [Suspect]
     Indication: MUSCULAR WEAKNESS
     Dosage: 20 MGS. 4X/DAY PO
     Route: 048
  3. PREDNISONE [Suspect]
     Indication: SYSTEMIC LUPUS ERYTHEMATOSUS
     Dosage: 20 MGS. 4X/DAY PO
     Route: 048

REACTIONS (9)
  - ALOPECIA [None]
  - GAIT DISTURBANCE [None]
  - LIPOHYPERTROPHY [None]
  - ORTHOSIS USER [None]
  - OSTEONECROSIS [None]
  - SWELLING FACE [None]
  - UNEMPLOYMENT [None]
  - WALKING AID USER [None]
  - WHEELCHAIR USER [None]
